FAERS Safety Report 20018385 (Version 2)
Quarter: 2021Q4

REPORT INFORMATION
  Report Type: Spontaneous
  Country: US (occurrence: US)
  Receive Date: 20211101
  Receipt Date: 20211124
  Transmission Date: 20220304
  Serious: No
  Sender: FDA-Public Use
  Company Number: US-APOTEX-2021AP043686

PATIENT
  Sex: Male

DRUGS (1)
  1. MOMETASONE FUROATE [Suspect]
     Active Substance: MOMETASONE FUROATE
     Indication: Sinusitis
     Dosage: 4 DOSAGE FORM, QD (EACH NOSTRIL DAILY)
     Route: 045
     Dates: start: 202107

REACTIONS (2)
  - Discomfort [Recovered/Resolved]
  - Drug ineffective [Unknown]
